FAERS Safety Report 12545286 (Version 1)
Quarter: 2016Q3

REPORT INFORMATION
  Report Type: Spontaneous
  Country: US (occurrence: US)
  Receive Date: 20160711
  Receipt Date: 20160711
  Transmission Date: 20161109
  Serious: No
  Sender: FDA-Public Use
  Company Number: GXBR2015US002830

PATIENT
  Age: 95 Year
  Sex: Male

DRUGS (1)
  1. NITRO-BID [Suspect]
     Active Substance: NITROGLYCERIN
     Indication: CHEST PAIN
     Dosage: UNK DF, UNK
     Route: 061

REACTIONS (1)
  - Blood pressure decreased [Not Recovered/Not Resolved]
